FAERS Safety Report 14069559 (Version 8)
Quarter: 2018Q3

REPORT INFORMATION
  Report Type: Report from Study
  Country: None (occurrence: US)
  Receive Date: 20171010
  Receipt Date: 20180712
  Transmission Date: 20181010
  Serious: Yes (Hospitalization, Other)
  Sender: FDA-Public Use
  Company Number: US-ABBVIE-17K-163-1936422-00

PATIENT
  Sex: Female
  Weight: 78.09 kg

DRUGS (10)
  1. SUCRALFATE. [Concomitant]
     Active Substance: SUCRALFATE
     Indication: GASTROOESOPHAGEAL REFLUX DISEASE
  2. NORCO [Concomitant]
     Active Substance: ACETAMINOPHEN\HYDROCODONE BITARTRATE
     Indication: ANKYLOSING SPONDYLITIS
  3. MELOXICAM. [Concomitant]
     Active Substance: MELOXICAM
     Indication: ANKYLOSING SPONDYLITIS
  4. DIAZEPAM. [Concomitant]
     Active Substance: DIAZEPAM
     Indication: MUSCLE SPASMS
  5. HUMIRA [Suspect]
     Active Substance: ADALIMUMAB
     Indication: RHEUMATOID ARTHRITIS
     Route: 058
     Dates: start: 201506, end: 20170906
  6. HUMIRA [Suspect]
     Active Substance: ADALIMUMAB
     Indication: ANKYLOSING SPONDYLITIS
     Route: 058
     Dates: start: 20171004
  7. LEVOTHYROXINE. [Concomitant]
     Active Substance: LEVOTHYROXINE
     Indication: HYPOTHYROIDISM
  8. VITAMIN D [Concomitant]
     Active Substance: CHOLECALCIFEROL
     Indication: VITAMIN SUPPLEMENTATION
  9. VITAMIN B12 [Concomitant]
     Active Substance: CYANOCOBALAMIN
     Indication: VITAMIN SUPPLEMENTATION
  10. FENTANYL. [Concomitant]
     Active Substance: FENTANYL
     Indication: ANKYLOSING SPONDYLITIS
     Dosage: PATCH
     Dates: start: 2002

REACTIONS (19)
  - Pain in extremity [Unknown]
  - Loss of consciousness [Unknown]
  - Dysuria [Unknown]
  - Fatigue [Unknown]
  - Arthralgia [Unknown]
  - Back pain [Unknown]
  - Vomiting [Unknown]
  - Abdominal discomfort [Unknown]
  - Post procedural complication [Unknown]
  - Nerve compression [Unknown]
  - Drug ineffective [Unknown]
  - Injection site pain [Unknown]
  - Osteoarthritis [Not Recovered/Not Resolved]
  - Body height decreased [Unknown]
  - Osteoporosis [Unknown]
  - Posture abnormal [Unknown]
  - Nasopharyngitis [Unknown]
  - Injection site bruising [Unknown]
  - Sensitivity to weather change [Unknown]

NARRATIVE: CASE EVENT DATE: 2015
